FAERS Safety Report 20850813 (Version 1)
Quarter: 2022Q2

REPORT INFORMATION
  Report Type: Spontaneous
  Country: US (occurrence: US)
  Receive Date: 20220519
  Receipt Date: 20220519
  Transmission Date: 20220721
  Serious: No
  Sender: FDA-Public Use
  Company Number: US-PFIZER INC-202200230350

PATIENT
  Age: 84 Year
  Weight: 67.5 kg

DRUGS (2)
  1. HEPARIN SODIUM [Suspect]
     Active Substance: HEPARIN SODIUM
     Dosage: 10,000 UNITS PER 10ML (HEPARIN SSOL 10,000UN/10ML 1X25 GVL)
  2. HEPARIN SODIUM [Suspect]
     Active Substance: HEPARIN SODIUM
     Dosage: 10,000 UNITS PER 10ML

REACTIONS (1)
  - Drug ineffective [Unknown]
